FAERS Safety Report 4281073-6 (Version None)
Quarter: 2004Q1

REPORT INFORMATION
  Report Type: 
  Country: None (occurrence: None)
  Receive Date: 20040127
  Receipt Date: 20040114
  Transmission Date: 20041129
  Serious: Yes (Hospitalization, Other)
  Sender: FDA-Public Use
  Company Number: HQWYE696517DEC03

PATIENT
  Age: 73 Year
  Sex: Female

DRUGS (5)
  1. CORDARONE [Suspect]
     Dosage: RESTARTED AT THE TIME OF DISCHARGE
     Dates: start: 20030601
  2. ALDACTONE [Suspect]
     Indication: CARDIOMYOPATHY
     Dosage: 50 MG DAILY
  3. BISOPROLOL FUMARATE [Suspect]
     Dosage: RESTARTED AT THE TIME OF DISCHARGE
     Dates: start: 20021215, end: 20030117
  4. BISOPROLOL FUMARATE [Suspect]
     Dosage: RESTARTED AT THE TIME OF DISCHARGE
     Dates: start: 20030601
  5. MEXITIL [Concomitant]

REACTIONS (7)
  - ASTHENIA [None]
  - BRADYCARDIA [None]
  - BUNDLE BRANCH BLOCK LEFT [None]
  - DRUG INTERACTION [None]
  - HYPONATRAEMIA [None]
  - RENAL FAILURE [None]
  - SYNCOPE [None]
